FAERS Safety Report 6220451-2 (Version None)
Quarter: 2009Q2

REPORT INFORMATION
  Report Type: 
  Country: None (occurrence: None)
  Receive Date: 20090610
  Receipt Date: 20090608
  Transmission Date: 20091009
  Serious: Yes (Other)
  Sender: FDA-Public Use
  Company Number: US-JNJFOC-20090400041

PATIENT
  Sex: Female
  Weight: 67.13 kg

DRUGS (1)
  1. LEVAQUIN [Suspect]
     Indication: PNEUMONIA
     Route: 048

REACTIONS (8)
  - DYSPNOEA [None]
  - ERYTHEMA [None]
  - JOINT CREPITATION [None]
  - OSTEOARTHRITIS [None]
  - PAIN IN EXTREMITY [None]
  - RASH [None]
  - SKIN EXFOLIATION [None]
  - TENDON PAIN [None]
